FAERS Safety Report 19474396 (Version 2)
Quarter: 2021Q3

REPORT INFORMATION
  Report Type: Report from Study
  Country: CA (occurrence: CA)
  Receive Date: 20210629
  Receipt Date: 20210705
  Transmission Date: 20211014
  Serious: Yes (Other)
  Sender: FDA-Public Use
  Company Number: CA-JNJFOC-20210651968

PATIENT
  Age: 81 Year
  Sex: Female
  Weight: 100.9 kg

DRUGS (1)
  1. REMICADE [Suspect]
     Active Substance: INFLIXIMAB
     Indication: CROHN^S DISEASE
     Dosage: ON 23?JUN?2021, THE PATIENT RECEIVED 77TH 706 MILLIGRAMS INFLIXIMAB INFUSION AND PARTIAL HARVEY?BRAD
     Route: 042
     Dates: start: 20100104

REACTIONS (2)
  - Malignant melanoma [Recovering/Resolving]
  - Constipation [Recovering/Resolving]

NARRATIVE: CASE EVENT DATE: 20210614
